FAERS Safety Report 16711485 (Version 2)
Quarter: 2019Q3

REPORT INFORMATION
  Report Type: Report from Study
  Country: US (occurrence: US)
  Receive Date: 20190816
  Receipt Date: 20190827
  Transmission Date: 20191004
  Serious: No
  Sender: FDA-Public Use
  Company Number: US-SA-2019SA220896

PATIENT
  Age: 13 Year
  Sex: Female

DRUGS (2)
  1. DUPILUMAB [Suspect]
     Active Substance: DUPILUMAB
     Indication: DERMATITIS ATOPIC
  2. DUPILUMAB [Suspect]
     Active Substance: DUPILUMAB
     Indication: ECZEMA
     Dosage: 300 MG, 1X
     Route: 058
     Dates: start: 20190806, end: 20190806

REACTIONS (6)
  - Injection site irritation [Unknown]
  - Injection site pain [Recovering/Resolving]
  - Injection site rash [Unknown]
  - Injection site erythema [Unknown]
  - Injection site induration [Unknown]
  - Incorrect dose administered [Unknown]

NARRATIVE: CASE EVENT DATE: 20190806
